FAERS Safety Report 5893647-7 (Version None)
Quarter: 2008Q3

REPORT INFORMATION
  Report Type: 
  Country: None (occurrence: None)
  Receive Date: 20080923
  Receipt Date: 20071106
  Transmission Date: 20090109
  Serious: No
  Sender: FDA-Public Use
  Company Number: US-ASTRAZENECA-2007UW22905

PATIENT
  Age: 30 Year
  Sex: Female
  Weight: 68.9 kg

DRUGS (2)
  1. SEROQUEL [Suspect]
     Indication: BIPOLAR DISORDER
     Route: 048
     Dates: start: 20070928
  2. XANAX [Concomitant]

REACTIONS (2)
  - FEELING ABNORMAL [None]
  - INCREASED APPETITE [None]
